FAERS Safety Report 7648654-0 (Version None)
Quarter: 2011Q3

REPORT INFORMATION
  Report Type: 
  Country: None (occurrence: None)
  Receive Date: 20110801
  Receipt Date: 20110728
  Transmission Date: 20111222
  Serious: No
  Sender: FDA-Public Use
  Company Number: US-PFIZER INC-2011173360

PATIENT
  Sex: Male
  Weight: 83.9 kg

DRUGS (2)
  1. PRISTIQ [Suspect]
     Indication: ANGER
     Dosage: 50 MG, DAILY
     Route: 048
     Dates: start: 20110725
  2. PRISTIQ [Suspect]
     Dosage: UNK
     Route: 048
     Dates: start: 20110725

REACTIONS (4)
  - DRUG DOSE OMISSION [None]
  - HYPERHIDROSIS [None]
  - NERVOUSNESS [None]
  - ANXIETY [None]
